FAERS Safety Report 20094143 (Version 1)
Quarter: 2021Q4

REPORT INFORMATION
  Report Type: Spontaneous
  Country: US (occurrence: US)
  Receive Date: 20211122
  Receipt Date: 20211122
  Transmission Date: 20220303
  Serious: Yes (Hospitalization)
  Sender: FDA-Public Use
  Company Number: US-JNJFOC-20211124797

PATIENT
  Age: 34 Year
  Sex: Female
  Weight: 63.5 kg

DRUGS (3)
  1. ACETAMINOPHEN [Suspect]
     Active Substance: ACETAMINOPHEN
     Indication: Suicide attempt
     Dosage: TOOK SINGLE DOSE 25000 MG OF ACETAMINOPHEN ONCE ON 17-JAN-2002 AT 12:00
     Route: 048
     Dates: start: 20020117, end: 20020117
  2. BISACODYL [Concomitant]
     Active Substance: BISACODYL
     Indication: Product used for unknown indication
     Route: 065
  3. VIVARIN [CAFFEINE] [Concomitant]
     Indication: Product used for unknown indication
     Route: 065

REACTIONS (6)
  - Suicide attempt [Recovered/Resolved]
  - Arrhythmia [Recovered/Resolved]
  - Chest X-ray abnormal [Recovered/Resolved]
  - Pleural effusion [Recovered/Resolved]
  - Intentional overdose [Recovered/Resolved]
  - Acute hepatic failure [Recovered/Resolved]
